FAERS Safety Report 12081869 (Version 1)
Quarter: 2016Q1

REPORT INFORMATION
  Report Type: Spontaneous
  Country: ES (occurrence: ES)
  Receive Date: 20160216
  Receipt Date: 20160216
  Transmission Date: 20160526
  Serious: Yes (Other)
  Sender: FDA-Public Use
  Company Number: ES-GILEAD-2016-0197303

PATIENT
  Sex: Female

DRUGS (1)
  1. HARVONI [Suspect]
     Active Substance: LEDIPASVIR\SOFOSBUVIR
     Indication: CHRONIC HEPATITIS C
     Dosage: 1 CP DIA
     Route: 048
     Dates: start: 20151228

REACTIONS (1)
  - Guillain-Barre syndrome [Recovering/Resolving]

NARRATIVE: CASE EVENT DATE: 20151228
